FAERS Safety Report 20438863 (Version 1)
Quarter: 2022Q1

REPORT INFORMATION
  Report Type: Spontaneous
  Country: US (occurrence: None)
  Receive Date: 20220203
  Receipt Date: 20220203
  Transmission Date: 20220423
  Serious: Yes (Other)
  Sender: FDA-Public Use
  Company Number: None

PATIENT

DRUGS (2)
  1. HEPARIN SODIUM AND DEXTROSE [Suspect]
     Active Substance: HEPARIN SODIUM
     Indication: Prophylaxis
     Route: 042
     Dates: end: 20211211
  2. CALCIUM CHLORIDE [Suspect]
     Active Substance: CALCIUM CHLORIDE
     Route: 042
     Dates: end: 20211211

REACTIONS (6)
  - Complication associated with device [None]
  - Device occlusion [None]
  - Manufacturing materials issue [None]
  - Product preparation issue [None]
  - Product deposit [None]
  - Complication associated with device [None]
